FAERS Safety Report 22106675 (Version 5)
Quarter: 2024Q1

REPORT INFORMATION
  Report Type: Spontaneous
  Country: US (occurrence: US)
  Receive Date: 20230317
  Receipt Date: 20240109
  Transmission Date: 20240409
  Serious: No
  Sender: FDA-Public Use
  Company Number: US-SA-SAC20230309001399

PATIENT
  Age: 49 Year
  Sex: Female

DRUGS (1)
  1. DUPIXENT [Suspect]
     Active Substance: DUPILUMAB
     Indication: Dermatitis atopic
     Dosage: 300 MG, QOW
     Route: 058
     Dates: start: 202109

REACTIONS (7)
  - Psoriasis [Unknown]
  - Pruritus [Unknown]
  - Erythema [Unknown]
  - Rash [Unknown]
  - Therapeutic product effect decreased [Unknown]
  - Dermatitis atopic [Unknown]
  - Product dose omission issue [Unknown]
